FAERS Safety Report 7547435-6 (Version None)
Quarter: 2011Q2

REPORT INFORMATION
  Report Type: 
  Country: None (occurrence: None)
  Receive Date: 20110614
  Receipt Date: 20110304
  Transmission Date: 20111010
  Serious: Yes (Death, Other)
  Sender: FDA-Public Use
  Company Number: US-BAYER-201015439NA

PATIENT
  Age: 71 Year
  Sex: Female

DRUGS (4)
  1. ATENOLOL [Concomitant]
  2. ACETYLSALICYLIC ACID SRT [Concomitant]
  3. TRASYLOL [Suspect]
     Indication: AORTIC ANEURYSM REPAIR
     Route: 042
     Dates: start: 19990702
  4. HYDROCHLOROTHIAZIDE [Concomitant]

REACTIONS (5)
  - RENAL FAILURE [None]
  - INJURY [None]
  - DEATH [None]
  - RENAL FAILURE ACUTE [None]
  - PAIN [None]
